FAERS Safety Report 8708829 (Version 2)
Quarter: 2012Q4

REPORT INFORMATION
  Report Type: 
  Country: SE (occurrence: SE)
  Receive Date: 20120806
  Receipt Date: 20120907
  Transmission Date: 20130627
  Serious: Yes (Hospitalization)
  Sender: FDA-Public Use
  Company Number: SE-ROCHE-1089022

PATIENT
  Age: 71 Year
  Sex: Male

DRUGS (2)
  1. AVASTIN [Suspect]
     Indication: PRODUCT USED FOR UNKNOWN INDICATION
     Dosage: solution for infusion 25 mg/ml
     Route: 031
     Dates: start: 201203, end: 201206
  2. AVASTIN [Suspect]
     Dosage: 0.05ML3 ML 3
     Route: 065

REACTIONS (1)
  - Myocardial infarction [Not Recovered/Not Resolved]
